FAERS Safety Report 10097461 (Version 1)
Quarter: 2014Q2

REPORT INFORMATION
  Report Type: Spontaneous
  Country: IE (occurrence: IE)
  Receive Date: 20140423
  Receipt Date: 20140423
  Transmission Date: 20141212
  Serious: Yes (Death)
  Sender: FDA-Public Use
  Company Number: IE-AMGEN-IRLSP2014028045

PATIENT
  Age: 65 Year
  Sex: Male

DRUGS (6)
  1. ARANESP [Suspect]
     Indication: RENAL FAILURE CHRONIC
     Dosage: 30 MUG, UNK
     Route: 058
     Dates: start: 20140108
  2. CALCICHEW [Concomitant]
  3. LYRICA [Concomitant]
  4. BURINEX [Concomitant]
  5. INSULIN [Concomitant]
  6. DOMERID [Concomitant]

REACTIONS (1)
  - Death [Fatal]
